FAERS Safety Report 18240302 (Version 16)
Quarter: 2023Q4

REPORT INFORMATION
  Report Type: Spontaneous
  Country: DE (occurrence: DE)
  Receive Date: 20200908
  Receipt Date: 20231004
  Transmission Date: 20240109
  Serious: Yes (Life-Threatening, Hospitalization, Other)
  Sender: FDA-Public Use
  Company Number: DE-SA-2020SA105002

PATIENT
  Age: 86 Year
  Sex: Male
  Weight: 130 kg

DRUGS (8)
  1. BISOPROLOL [Suspect]
     Active Substance: BISOPROLOL\BISOPROLOL FUMARATE
     Indication: Hypertension
     Dosage: UNK
     Route: 048
     Dates: start: 20200507, end: 20200507
  2. BISOPROLOL [Suspect]
     Active Substance: BISOPROLOL\BISOPROLOL FUMARATE
     Dosage: UNK
     Route: 048
     Dates: end: 20200507
  3. MINERALS\VITAMINS [Suspect]
     Active Substance: MINERALS\VITAMINS
     Indication: Product used for unknown indication
     Dosage: UNK
     Route: 065
  4. DUPILUMAB [Suspect]
     Active Substance: DUPILUMAB
     Indication: Dermatitis atopic
     Dosage: 2 WEEK (EVERY 2 WEEKS (QOW)
     Route: 058
     Dates: start: 20200227
  5. DUPILUMAB [Suspect]
     Active Substance: DUPILUMAB
     Indication: Asthma
  6. SPIRONOLACTONE [Suspect]
     Active Substance: SPIRONOLACTONE
     Indication: Hypertension
     Dosage: UNK
     Route: 048
     Dates: start: 20200507, end: 20200507
  7. SPIRONOLACTONE [Suspect]
     Active Substance: SPIRONOLACTONE
     Dosage: UNK
     Route: 048
     Dates: end: 20200507
  8. VITAMIN B [Concomitant]
     Active Substance: VITAMIN B
     Indication: Product used for unknown indication
     Dosage: UNK
     Route: 065

REACTIONS (25)
  - Fall [Recovered/Resolved]
  - Rib fracture [Not Recovered/Not Resolved]
  - Dyspnoea [Not Recovered/Not Resolved]
  - Abdominal pain [Not Recovered/Not Resolved]
  - Chest pain [Not Recovered/Not Resolved]
  - Spinal stenosis [Recovered/Resolved]
  - Atrioventricular block [Not Recovered/Not Resolved]
  - Hyperkalaemia [Recovered/Resolved]
  - Bradyarrhythmia [Recovered/Resolved]
  - Urosepsis [Not Recovered/Not Resolved]
  - Gait disturbance [Recovered/Resolved]
  - Cardioversion [Recovered/Resolved]
  - Dizziness [Recovered/Resolved]
  - Atrial fibrillation [Recovered/Resolved]
  - General physical health deterioration [Recovered/Resolved]
  - Pleural effusion [Not Recovered/Not Resolved]
  - Inflammatory marker increased [Not Recovered/Not Resolved]
  - Hepatic cirrhosis [Recovering/Resolving]
  - Cardiac disorder [Recovering/Resolving]
  - Cardiac failure [Not Recovered/Not Resolved]
  - General physical condition abnormal [Recovered/Resolved]
  - Pruritus [Not Recovered/Not Resolved]
  - Urinary incontinence [Not Recovered/Not Resolved]
  - Head injury [Recovered/Resolved]
  - Asthenia [Not Recovered/Not Resolved]

NARRATIVE: CASE EVENT DATE: 20200313
